FAERS Safety Report 20504999 (Version 3)
Quarter: 2022Q2

REPORT INFORMATION
  Report Type: Spontaneous
  Country: US (occurrence: US)
  Receive Date: 20220223
  Receipt Date: 20220616
  Transmission Date: 20220720
  Serious: No
  Sender: FDA-Public Use
  Company Number: US-SA-SAC20220218000275

PATIENT
  Age: 51 Year
  Sex: Female

DRUGS (1)
  1. DUPIXENT [Suspect]
     Active Substance: DUPILUMAB
     Indication: Dermatitis atopic
     Dosage: 300 MG, QOW
     Route: 058
     Dates: start: 20211210

REACTIONS (9)
  - Gastrooesophageal reflux disease [Unknown]
  - Condition aggravated [Unknown]
  - General physical condition abnormal [Not Recovered/Not Resolved]
  - Mental status changes [Not Recovered/Not Resolved]
  - Perioral dermatitis [Unknown]
  - Circumoral oedema [Unknown]
  - Periorbital swelling [Unknown]
  - Arthralgia [Unknown]
  - Rash [Not Recovered/Not Resolved]

NARRATIVE: CASE EVENT DATE: 20220115
